FAERS Safety Report 13657953 (Version 4)
Quarter: 2018Q1

REPORT INFORMATION
  Report Type: Spontaneous
  Country: JP (occurrence: JP)
  Receive Date: 20170616
  Receipt Date: 20180228
  Transmission Date: 20180508
  Serious: Yes (Hospitalization, Other)
  Sender: FDA-Public Use
  Company Number: JP-ROCHE-1950830

PATIENT
  Age: 91 Year
  Sex: Female
  Weight: 38 kg

DRUGS (10)
  1. AZILVA [Concomitant]
     Active Substance: AZILSARTAN KAMEDOXOMIL
     Dosage: DOSAGE IS UNCERTAIN.
     Route: 048
     Dates: start: 20130703
  2. CARVEDILOL. [Concomitant]
     Active Substance: CARVEDILOL
     Dosage: DOSAGE IS UNCERTAIN.
     Route: 048
     Dates: start: 20110831
  3. TAMIFLU [Suspect]
     Active Substance: OSELTAMIVIR PHOSPHATE
     Indication: INFLUENZA
     Route: 048
     Dates: start: 20170605, end: 20170605
  4. TAMIFLU [Suspect]
     Active Substance: OSELTAMIVIR PHOSPHATE
     Indication: INFLUENZA
     Route: 048
     Dates: start: 20170606, end: 20170606
  5. CALONAL [Concomitant]
     Active Substance: ACETAMINOPHEN
     Dosage: DOSAGE IS UNCERTAIN.
     Route: 048
     Dates: start: 20170511
  6. ELIQUIS [Concomitant]
     Active Substance: APIXABAN
     Dosage: DOSAGE IS UNCERTAIN.
     Route: 048
     Dates: start: 20140418
  7. SPIRONOLACTONE. [Concomitant]
     Active Substance: SPIRONOLACTONE
     Dosage: DOSAGE IS UNCERTAIN.
     Route: 048
     Dates: start: 20140423
  8. CONIEL [Concomitant]
     Active Substance: BENIDIPINE HYDROCHLORIDE
     Dosage: DOSAGE IS UNCERTAIN.
     Route: 048
     Dates: start: 20161110
  9. ISOSORBIDE DINITRATE. [Concomitant]
     Active Substance: ISOSORBIDE DINITRATE
     Dosage: DOSAGE IS UNCERTAIN.
     Route: 062
     Dates: start: 20161110
  10. TAKECAB [Concomitant]
     Active Substance: VONOPRAZAN FUMURATE
     Dosage: DOSAGE IS UNCERTAIN.
     Route: 048
     Dates: start: 20161110

REACTIONS (7)
  - Biliary tract infection [Unknown]
  - Inappropriate antidiuretic hormone secretion [Recovering/Resolving]
  - Hepatic function abnormal [Recovering/Resolving]
  - Back pain [Unknown]
  - Speech disorder [Unknown]
  - Abnormal behaviour [Unknown]
  - Hyponatraemia [Recovering/Resolving]

NARRATIVE: CASE EVENT DATE: 20170606
